FAERS Safety Report 7330669-3 (Version None)
Quarter: 2011Q1

REPORT INFORMATION
  Report Type: 
  Country: None (occurrence: None)
  Receive Date: 20110225
  Receipt Date: 20110225
  Transmission Date: 20110831
  Serious: Yes (Other)
  Sender: FDA-Public Use
  Company Number: None

PATIENT
  Age: 47 Year
  Sex: Female
  Weight: 58.9676 kg

DRUGS (1)
  1. REMBRANDT 2 HOUR WHITENING KIT [Suspect]
     Indication: TOOTH DISCOLOURATION
     Dosage: 8 AMPS/2 HR PERIOD, ORAL
     Route: 048
     Dates: start: 20110115

REACTIONS (5)
  - DYSPHAGIA [None]
  - SWELLING FACE [None]
  - ORAL DISCOMFORT [None]
  - PHARYNGEAL OEDEMA [None]
  - DYSPNOEA [None]
